FAERS Safety Report 6325944-5 (Version None)
Quarter: 2009Q3

REPORT INFORMATION
  Report Type: 
  Country: None (occurrence: None)
  Receive Date: 20090824
  Receipt Date: 20090820
  Transmission Date: 20100115
  Serious: Yes (Hospitalization)
  Sender: FDA-Public Use
  Company Number: FR-BRISTOL-MYERS SQUIBB COMPANY-14749873

PATIENT
  Age: 47 Year
  Sex: Male

DRUGS (3)
  1. ELISOR TABS [Suspect]
     Dates: start: 20090701
  2. GLUCOPHAGE [Suspect]
     Dates: start: 20090701
  3. LIPANTHYL [Concomitant]

REACTIONS (1)
  - SOMNAMBULISM [None]
